FAERS Safety Report 23383788 (Version 2)
Quarter: 2024Q1

REPORT INFORMATION
  Report Type: Report from Study
  Country: US (occurrence: US)
  Receive Date: 20240109
  Receipt Date: 20240131
  Transmission Date: 20240409
  Serious: No
  Sender: FDA-Public Use
  Company Number: US-SA-SAC20240104000640

PATIENT
  Age: 82 Year
  Sex: Female

DRUGS (2)
  1. DUPIXENT [Suspect]
     Active Substance: DUPILUMAB
     Indication: Dermatitis
     Dosage: 300 MG, QOW
     Route: 058
     Dates: start: 20230622
  2. DUPIXENT [Suspect]
     Active Substance: DUPILUMAB
     Indication: Dermatitis atopic

REACTIONS (9)
  - Feeling hot [Unknown]
  - Flushing [Unknown]
  - Erythema [Unknown]
  - Helminthic infection [Unknown]
  - Rash [Unknown]
  - Pain [Unknown]
  - Skin swelling [Unknown]
  - Swelling face [Recovering/Resolving]
  - Product use in unapproved indication [Unknown]
